FAERS Safety Report 5361156-X (Version None)
Quarter: 2007Q2

REPORT INFORMATION
  Report Type: 
  Country: None (occurrence: None)
  Receive Date: 20070618
  Receipt Date: 20070612
  Transmission Date: 20071010
  Serious: Yes (Life-Threatening)
  Sender: FDA-Public Use
  Company Number: US-MERCK-0706USA02124

PATIENT
  Age: 70 Year
  Sex: Male
  Weight: 91 kg

DRUGS (7)
  1. JANUVIA [Suspect]
     Indication: DIABETES MELLITUS NON-INSULIN-DEPENDENT
     Route: 048
     Dates: start: 20070501, end: 20070101
  2. WARFARIN [Concomitant]
     Route: 065
  3. COREG [Concomitant]
     Route: 065
  4. LIPITOR [Concomitant]
     Route: 065
  5. TORSEMIDE [Concomitant]
     Route: 065
  6. LISINOPRIL [Concomitant]
     Route: 065
  7. HUMULIN R [Concomitant]
     Route: 065

REACTIONS (1)
  - BLOOD PRESSURE INCREASED [None]
